FAERS Safety Report 4758873-9 (Version None)
Quarter: 2005Q3

REPORT INFORMATION
  Report Type: 
  Country: None (occurrence: None)
  Receive Date: 20050826
  Receipt Date: 20050815
  Transmission Date: 20060218
  Serious: Yes (Other)
  Sender: FDA-Public Use
  Company Number: 2005098207

PATIENT
  Age: 60 Year
  Sex: Male
  Weight: 88.4514 kg

DRUGS (3)
  1. LIPITOR [Suspect]
     Indication: HYPERLIPIDAEMIA
     Dosage: 10 MG (10 MG, 1 IN 1 D), ORAL
     Route: 048
     Dates: start: 20020411, end: 20040101
  2. BUFFERIN [Suspect]
     Indication: MYALGIA
     Dosage: 2 TABLETS (BID TO TID)
  3. XANAX [Concomitant]

REACTIONS (12)
  - CRUSH INJURY [None]
  - DYSPEPSIA [None]
  - FATIGUE [None]
  - INFLUENZA [None]
  - MICTURITION URGENCY [None]
  - MYALGIA [None]
  - MYOPATHY [None]
  - NERVE INJURY [None]
  - OSTEOARTHRITIS [None]
  - PARVOVIRUS INFECTION [None]
  - TENDON DISORDER [None]
  - VIRUS SEROLOGY TEST POSITIVE [None]
